FAERS Safety Report 6330500-9 (Version None)
Quarter: 2009Q3

REPORT INFORMATION
  Report Type: 
  Country: None (occurrence: None)
  Receive Date: 20090827
  Receipt Date: 20090818
  Transmission Date: 20100115
  Serious: Yes (Other)
  Sender: FDA-Public Use
  Company Number: US-ALLERGAN-0911291US

PATIENT
  Age: 29 Year
  Sex: Male

DRUGS (2)
  1. ZYMAR [Suspect]
     Indication: POSTOPERATIVE CARE
     Dosage: 1 GTT, QID
     Route: 047
     Dates: start: 20090427, end: 20090430
  2. OMNIPRED FORTE [Concomitant]
     Indication: POSTOPERATIVE CARE
     Dosage: 1 GTT, QID
     Route: 047
     Dates: start: 20090427, end: 20090505

REACTIONS (4)
  - DRUG ERUPTION [None]
  - EYELID OEDEMA [None]
  - RASH [None]
  - URTICARIA [None]
